FAERS Safety Report 5663787-6 (Version None)
Quarter: 2008Q1

REPORT INFORMATION
  Report Type: 
  Country: None (occurrence: None)
  Receive Date: 20080311
  Receipt Date: 20080227
  Transmission Date: 20080703
  Serious: Yes (Other)
  Sender: FDA-Public Use
  Company Number: 023744

PATIENT
  Age: 37 Year
  Sex: Female
  Weight: 52.2 kg

DRUGS (1)
  1. PLAN B [Suspect]
     Indication: POST COITAL CONTRACEPTION
     Dosage: 1 TABLET, Q12HR, ORAL
     Route: 048
     Dates: start: 20080108, end: 20080108

REACTIONS (4)
  - ARTHRALGIA [None]
  - ARTHRITIS [None]
  - ERYTHEMA NODOSUM [None]
  - RASH [None]
